FAERS Safety Report 17134788 (Version 1)
Quarter: 2019Q4

REPORT INFORMATION
  Report Type: Spontaneous
  Country: FR (occurrence: FR)
  Receive Date: 20191210
  Receipt Date: 20191210
  Transmission Date: 20200122
  Serious: Yes (Hospitalization)
  Sender: FDA-Public Use
  Company Number: FR-BRISTOL-MYERS SQUIBB COMPANY-BMS-2019-116875

PATIENT
  Age: 71 Year
  Sex: Female
  Weight: 81 kg

DRUGS (4)
  1. KARDEGIC [Concomitant]
     Active Substance: ASPIRIN DL-LYSINE
     Indication: PRODUCT USED FOR UNKNOWN INDICATION
     Route: 065
  2. ELIQUIS [Suspect]
     Active Substance: APIXABAN
     Indication: CEREBROVASCULAR ACCIDENT PROPHYLAXIS
     Route: 048
     Dates: start: 201905
  3. HYDREA [Suspect]
     Active Substance: HYDROXYUREA
     Indication: POLYCYTHAEMIA VERA
     Dosage: 1000 MILLIGRAM, QD
     Route: 048
     Dates: start: 2014, end: 20191119
  4. DOXYCYCLINE. [Concomitant]
     Active Substance: DOXYCYCLINE
     Indication: PRODUCT USED FOR UNKNOWN INDICATION
     Route: 065

REACTIONS (4)
  - Dermatosis [Recovering/Resolving]
  - Hyperkeratosis [Recovering/Resolving]
  - Purpura [Recovering/Resolving]
  - Vulvovaginitis [Recovering/Resolving]

NARRATIVE: CASE EVENT DATE: 20191109
